FAERS Safety Report 10158578 (Version 2)
Quarter: 2014Q2

REPORT INFORMATION
  Report Type: Spontaneous
  Country: CZ (occurrence: CZ)
  Receive Date: 20140508
  Receipt Date: 20140527
  Transmission Date: 20141212
  Serious: Yes (Death)
  Sender: FDA-Public Use
  Company Number: CZ-ROCHE-1397539

PATIENT
  Age: 60 Year
  Sex: Female

DRUGS (2)
  1. AVASTIN [Suspect]
     Indication: BREAST CANCER
     Route: 042
     Dates: start: 20131219, end: 20140411
  2. LAGOSA [Concomitant]
     Route: 065
     Dates: start: 20131219, end: 20140411

REACTIONS (1)
  - Hepatic cirrhosis [Fatal]
